FAERS Safety Report 25191579 (Version 1)
Quarter: 2025Q2

REPORT INFORMATION
  Report Type: Spontaneous
  Country: US (occurrence: None)
  Receive Date: 20250411
  Receipt Date: 20250411
  Transmission Date: 20250717
  Serious: Yes (Hospitalization)
  Sender: FDA-CTU
  Company Number: None

PATIENT
  Age: 81 Year
  Sex: Female

DRUGS (1)
  1. NUPLAZID [Suspect]
     Active Substance: PIMAVANSERIN TARTRATE
     Dosage: 34 MG DAILY ORAL
     Route: 048
     Dates: start: 20250106, end: 20250217

REACTIONS (2)
  - Heart rate irregular [None]
  - Hypotension [None]

NARRATIVE: CASE EVENT DATE: 20250217
